FAERS Safety Report 7518642-3 (Version None)
Quarter: 2011Q2

REPORT INFORMATION
  Report Type: 
  Country: None (occurrence: None)
  Receive Date: 20110602
  Receipt Date: 20110530
  Transmission Date: 20111010
  Serious: Yes (Life-Threatening, Other)
  Sender: FDA-Public Use
  Company Number: US-PFIZER INC-2011116406

PATIENT
  Age: 47 Year
  Sex: Male

DRUGS (1)
  1. VERAPAMIL HCL [Suspect]
     Dosage: 6300 MG, UNK

REACTIONS (6)
  - ILEUS [None]
  - SHOCK [None]
  - ATRIOVENTRICULAR BLOCK COMPLETE [None]
  - INTENTIONAL OVERDOSE [None]
  - HYPOXIA [None]
  - LETHARGY [None]
